FAERS Safety Report 10297990 (Version 3)
Quarter: 2014Q3

REPORT INFORMATION
  Report Type: Spontaneous
  Country: AU (occurrence: AU)
  Receive Date: 20140711
  Receipt Date: 20140912
  Transmission Date: 20150326
  Serious: Yes (Other)
  Sender: FDA-Public Use
  Company Number: AU-SA-2014SA089803

PATIENT
  Age: 68 Year
  Sex: Female

DRUGS (10)
  1. RANIBIZUMAB [Concomitant]
     Active Substance: RANIBIZUMAB
     Route: 031
  2. LATANOPROST. [Concomitant]
     Active Substance: LATANOPROST
     Dosage: 0.005 PERCENT
  3. INFLUENZA VACCINE [Suspect]
     Active Substance: INFLUENZA VIRUS VACCINE
     Indication: IMMUNISATION
     Route: 065
     Dates: start: 2013, end: 2013
  4. RANIBIZUMAB [Concomitant]
     Active Substance: RANIBIZUMAB
     Dosage: 17 INJECTIONS IN THE LEFT EYE
     Dates: end: 201301
  5. AFLIBERCEPT [Suspect]
     Active Substance: AFLIBERCEPT
     Indication: PRODUCT USED FOR UNKNOWN INDICATION
     Dosage: DOSE: 2 MG IN 0.05 ML WAS INJECTED WITH A 30 G NEEDLE IN THE SUPEROTEMPORAL QUADRANT
     Route: 031
     Dates: start: 201302
  6. BEVACIZUMAB [Concomitant]
     Active Substance: BEVACIZUMAB
     Dosage: 3 INJECTIONS IN THE LEFT EYE
  7. LATANOPROST. [Concomitant]
     Active Substance: LATANOPROST
     Dosage: 0.005 PERCENT, ONE DROP IN EACH EYE
  8. POVIDONE IODINE [Concomitant]
     Active Substance: POVIDONE-IODINE
     Dosage: 5 PERCENT
  9. LIGNOCAINE [Concomitant]
     Active Substance: LIDOCAINE HYDROCHLORIDE
     Indication: ANAESTHESIA
     Dosage: 2 PERCENT
     Route: 057
  10. CHLORAMPHENICOL [Concomitant]
     Active Substance: CHLORAMPHENICOL
     Dosage: ONE DROP CHLORAMPHENICOL FOUR TIMES A DAY FOR?5 DAYS

REACTIONS (11)
  - Vitritis [Recovered/Resolved]
  - Non-infectious endophthalmitis [Recovered/Resolved]
  - Eye irritation [Recovered/Resolved]
  - Pupillary reflex impaired [Recovered/Resolved]
  - Eye pain [Recovered/Resolved]
  - Photopsia [Recovered/Resolved]
  - Off label use [Unknown]
  - Hypopyon [Recovered/Resolved]
  - Uveitis [Recovered/Resolved]
  - Condition aggravated [Recovered/Resolved]
  - Visual acuity reduced [Recovered/Resolved]

NARRATIVE: CASE EVENT DATE: 2013
